FAERS Safety Report 6031630-1 (Version None)
Quarter: 2009Q1

REPORT INFORMATION
  Report Type: 
  Country: None (occurrence: None)
  Receive Date: 20090108
  Receipt Date: 20081230
  Transmission Date: 20090719
  Serious: Yes (Hospitalization)
  Sender: FDA-Public Use
  Company Number: US-ELI_LILLY_AND_COMPANY-US200812006126

PATIENT
  Sex: Female

DRUGS (21)
  1. FORTEO [Suspect]
     Dates: start: 20071101, end: 20081202
  2. FORTEO [Suspect]
     Dates: start: 20081203
  3. COUMADIN [Concomitant]
     Indication: THROMBOSIS
  4. DITROPAN /USA/ [Concomitant]
     Indication: BLADDER DISORDER
  5. ELMIRON [Concomitant]
     Indication: BLADDER DISORDER
  6. FOLIC ACID [Concomitant]
  7. IMURAN [Concomitant]
     Indication: SYSTEMIC LUPUS ERYTHEMATOSUS
  8. METHADONE HCL [Concomitant]
     Indication: PAIN
  9. NEXIUM [Concomitant]
     Indication: GASTRIC DISORDER
  10. PLAQUENIL [Concomitant]
     Indication: SYSTEMIC LUPUS ERYTHEMATOSUS
  11. PREDNISONE [Concomitant]
     Indication: SYSTEMIC LUPUS ERYTHEMATOSUS
  12. PRIMIDONE [Concomitant]
     Indication: TREMOR
  13. RESTASIS [Concomitant]
     Indication: EYE DISORDER
  14. ASCORBIC ACID [Concomitant]
  15. VITAMIN D [Concomitant]
  16. VITAMIN B-12 [Concomitant]
  17. METHOTREXATE [Concomitant]
  18. ZOLOFT [Concomitant]
     Indication: DEPRESSION
  19. ATIVAN [Concomitant]
     Indication: ANXIETY
     Dosage: UNK, AS NEEDED
  20. ZANAFLEX [Concomitant]
     Indication: MUSCLE SPASMS
     Dosage: UNK, AS NEEDED
  21. TRAZODONE HCL [Concomitant]
     Indication: SLEEP DISORDER
     Dosage: UNK, AS NEEDED

REACTIONS (14)
  - ACTIVITIES OF DAILY LIVING IMPAIRED [None]
  - ANAEMIA [None]
  - BACK PAIN [None]
  - BLADDER DISORDER [None]
  - BODY HEIGHT DECREASED [None]
  - BONE MARROW DISORDER [None]
  - COMPRESSION FRACTURE [None]
  - GAIT DISTURBANCE [None]
  - GASTRIC DISORDER [None]
  - HAEMATOCRIT DECREASED [None]
  - HAEMOGLOBIN DECREASED [None]
  - LUMBAR SPINAL STENOSIS [None]
  - PAIN [None]
  - SYSTEMIC LUPUS ERYTHEMATOSUS [None]
